FAERS Safety Report 7018475-0 (Version None)
Quarter: 2010Q3

REPORT INFORMATION
  Report Type: 
  Country: None (occurrence: None)
  Receive Date: 20100924
  Receipt Date: 20100413
  Transmission Date: 20110219
  Serious: Yes (Disabling)
  Sender: FDA-Public Use
  Company Number: APP200900464

PATIENT
  Age: 44 Year
  Sex: Male
  Weight: 77.1115 kg

DRUGS (5)
  1. SENSORCAINE [Suspect]
     Indication: MUSCULOSKELETAL PAIN
     Dosage: 270 ML, CONTINUOUS VIA PUMP LEFT SHOULDER, INTRA-ARTICULAR, 5 ML, INTRA-ARTICULAR
     Route: 014
     Dates: start: 20060504
  2. SENSORCAINE [Suspect]
     Indication: MUSCULOSKELETAL PAIN
     Dosage: 270 ML, CONTINUOUS VIA PUMP LEFT SHOULDER, INTRA-ARTICULAR, 5 ML, INTRA-ARTICULAR
     Route: 014
     Dates: start: 20060504
  3. BUPIVACAINE HYDROCHLORIDE AND EPINEPHRINE [Suspect]
     Indication: PRODUCT USED FOR UNKNOWN INDICATION
     Dosage: 30 ML
     Dates: start: 20060504
  4. ON-Q PAIN PUMP [Suspect]
     Indication: MUSCULOSKELETAL PAIN
     Dates: start: 20060504
  5. ANCEF [Concomitant]

REACTIONS (6)
  - DEATH OF RELATIVE [None]
  - JOINT INJURY [None]
  - JOINT RANGE OF MOTION DECREASED [None]
  - MUSCULOSKELETAL DISCOMFORT [None]
  - MUSCULOSKELETAL PAIN [None]
  - SCAB [None]
